FAERS Safety Report 5890515-1 (Version None)
Quarter: 2008Q3

REPORT INFORMATION
  Report Type: 
  Country: None (occurrence: None)
  Receive Date: 20080922
  Receipt Date: 20080911
  Transmission Date: 20090109
  Serious: Yes (Other)
  Sender: FDA-Public Use
  Company Number: PHHY2007CA00856

PATIENT
  Sex: Female

DRUGS (2)
  1. SANDOSTATIN LAR [Suspect]
     Indication: CARCINOID TUMOUR
     Dosage: 30 MG, QMO
     Route: 030
     Dates: start: 20051202
  2. SANDOSTATIN LAR [Suspect]
     Dosage: 40 MG, QMO
     Route: 030
     Dates: start: 20071107

REACTIONS (11)
  - ABDOMINAL CAVITY DRAINAGE [None]
  - ASCITES [None]
  - ASTHENIA [None]
  - CONFUSIONAL STATE [None]
  - DIARRHOEA [None]
  - DYSSTASIA [None]
  - GAIT DISTURBANCE [None]
  - INJECTION SITE PAIN [None]
  - NEOPLASM PROGRESSION [None]
  - WEIGHT DECREASED [None]
  - WEIGHT INCREASED [None]
